FAERS Safety Report 21280619 (Version 1)
Quarter: 2022Q3

REPORT INFORMATION
  Report Type: Report from Study
  Country: AU (occurrence: AU)
  Receive Date: 20220901
  Receipt Date: 20220901
  Transmission Date: 20221026
  Serious: Yes (Other)
  Sender: FDA-Public Use
  Company Number: AU-MYLANLABS-2022M1090307

PATIENT
  Sex: Female

DRUGS (2)
  1. METOPROLOL [Suspect]
     Active Substance: METOPROLOL
     Indication: Cardiovascular autonomic function test
     Dosage: 0.2 MILLIGRAM/KILOGRAM
     Route: 065
  2. ATROPINE [Suspect]
     Active Substance: ATROPINE
     Indication: Cardiovascular autonomic function test
     Dosage: 0.04 MILLIGRAM/KILOGRAM
     Route: 065

REACTIONS (2)
  - Respiration abnormal [Unknown]
  - Off label use [Unknown]
